APPROVED DRUG PRODUCT: DOXEPIN HYDROCHLORIDE
Active Ingredient: DOXEPIN HYDROCHLORIDE
Strength: EQ 6MG BASE
Dosage Form/Route: TABLET;ORAL
Application: A219058 | Product #002 | TE Code: AB
Applicant: TARO PHARMACEUTICAL INDUSTRIES LTD
Approved: Aug 6, 2025 | RLD: No | RS: No | Type: RX